FAERS Safety Report 24544941 (Version 2)
Quarter: 2025Q1

REPORT INFORMATION
  Report Type: Spontaneous
  Country: US (occurrence: US)
  Receive Date: 20241024
  Receipt Date: 20250113
  Transmission Date: 20250408
  Serious: No
  Sender: PFIZER
  Company Number: US-PFIZER INC-PV202400136537

PATIENT
  Age: 46 Year
  Sex: Female
  Weight: 49 kg

DRUGS (4)
  1. TUKYSA [Suspect]
     Active Substance: TUCATINIB
     Indication: HER2 positive breast cancer
     Dosage: 150MG, 2 TABLETS TWICE DAILY
     Route: 048
     Dates: start: 20201201
  2. TUKYSA [Suspect]
     Active Substance: TUCATINIB
     Indication: Metastases to central nervous system
  3. XELODA [Concomitant]
     Active Substance: CAPECITABINE
     Indication: Breast cancer
     Dosage: 1500 MG, 2X/DAY
  4. HERCEPTIN [Concomitant]
     Active Substance: TRASTUZUMAB
     Indication: Breast cancer
     Dosage: 1X/3 WEEKS
     Route: 042

REACTIONS (3)
  - Fatigue [Recovered/Resolved]
  - Somnolence [Recovered/Resolved]
  - Product dose omission in error [Unknown]

NARRATIVE: CASE EVENT DATE: 20201205
